FAERS Safety Report 6427949-2 (Version None)
Quarter: 2009Q4

REPORT INFORMATION
  Report Type: 
  Country: None (occurrence: None)
  Receive Date: 20091105
  Receipt Date: 20091027
  Transmission Date: 20100525
  Serious: Yes (Death, Life-Threatening, Other)
  Sender: FDA-Public Use
  Company Number: PHHY2009JP38769

PATIENT
  Sex: Female

DRUGS (14)
  1. TASIGNA [Suspect]
     Indication: BLAST CRISIS IN MYELOGENOUS LEUKAEMIA
     Dosage: 800 MG/DAY
     Route: 048
     Dates: start: 20090826, end: 20090830
  2. SPRYCEL [Concomitant]
     Indication: CHRONIC MYELOID LEUKAEMIA TRANSFORMATION
     Dosage: 140 MG, UNK
     Route: 048
     Dates: start: 20090317, end: 20090822
  3. SOLDEM 3A [Concomitant]
     Dosage: 1500 ML, UNK
     Route: 042
     Dates: start: 20090830, end: 20090831
  4. XYLOCAINE [Concomitant]
     Dosage: 50 MG, UNK
     Route: 042
     Dates: start: 20090830, end: 20090830
  5. LANSOR [Concomitant]
     Dosage: 30 MG, UNK
     Route: 048
     Dates: start: 20090828
  6. LASIX [Concomitant]
     Dosage: 10 MG, UNK
     Route: 048
     Dates: start: 20090828
  7. ALDACTONE [Concomitant]
     Dosage: 25 MG, UNK
     Route: 048
     Dates: start: 20090828
  8. KYTRIL [Concomitant]
     Dosage: 2 MG, UNK
     Route: 048
     Dates: start: 20090828
  9. ALLOPURINOL [Concomitant]
     Dosage: 50 MG, UNK
     Route: 048
     Dates: start: 20090828
  10. NAUZELIN [Concomitant]
     Dosage: 30 MG, UNK
     Route: 048
     Dates: start: 20090828
  11. TRYPTANOL                               /AUS/ [Concomitant]
     Dosage: 30 MG, UNK
     Route: 048
     Dates: start: 20090828
  12. LAC B [Concomitant]
     Dosage: 3 G, UNK
     Route: 048
     Dates: start: 20090828
  13. LEBENIN [Concomitant]
     Dosage: 6 G, UNK
     Route: 048
     Dates: start: 20090828
  14. MAGMITT KENEI [Concomitant]
     Dosage: 1980 MG, UNK
     Route: 048
     Dates: start: 20090828

REACTIONS (5)
  - BLOOD POTASSIUM DECREASED [None]
  - ELECTROCARDIOGRAM QT PROLONGED [None]
  - MALIGNANT NEOPLASM PROGRESSION [None]
  - TERMINAL STATE [None]
  - TORSADE DE POINTES [None]
